FAERS Safety Report 5672771-8 (Version None)
Quarter: 2008Q1

REPORT INFORMATION
  Report Type: 
  Country: None (occurrence: None)
  Receive Date: 20080317
  Receipt Date: 20080307
  Transmission Date: 20080703
  Serious: Yes (Other)
  Sender: FDA-Public Use
  Company Number: CHNY2007DE03594

PATIENT
  Age: 73 Year
  Sex: Female

DRUGS (6)
  1. LAMISIL [Suspect]
     Indication: ONYCHOMYCOSIS
  2. TOREM (TORASEMIDE) [Concomitant]
  3. DIGITOXIN (DIGITOXIN) [Concomitant]
  4. BISO-HENNING [Concomitant]
  5. RAMIPRIL [Concomitant]
  6. MAGNESIUM SUPPLEMENTS (MAGNESIUM) [Concomitant]

REACTIONS (8)
  - APPLICATION SITE IRRITATION [None]
  - APPLICATION SITE PRURITUS [None]
  - BEDRIDDEN [None]
  - BURNING SENSATION [None]
  - MALAISE [None]
  - OFF LABEL USE [None]
  - PAIN [None]
  - SUICIDAL IDEATION [None]
